FAERS Safety Report 5053147-3 (Version None)
Quarter: 2006Q3

REPORT INFORMATION
  Report Type: 
  Country: None (occurrence: None)
  Receive Date: 20060712
  Receipt Date: 20060630
  Transmission Date: 20061208
  Serious: Yes (Hospitalization, Other)
  Sender: FDA-Public Use
  Company Number: 2005134645

PATIENT
  Sex: Female
  Weight: 68.0396 kg

DRUGS (3)
  1. CELEBREX [Suspect]
     Indication: ILL-DEFINED DISORDER
     Dosage: 200 MG
  2. BEXTRA [Suspect]
     Indication: ILL-DEFINED DISORDER
  3. VIOXX [Suspect]
     Indication: ILL-DEFINED DISORDER

REACTIONS (13)
  - ASTHENIA [None]
  - CARDIOVASCULAR DISORDER [None]
  - CEREBRAL THROMBOSIS [None]
  - DILATATION VENTRICULAR [None]
  - EJECTION FRACTION DECREASED [None]
  - HYPERTENSION [None]
  - HYPOAESTHESIA [None]
  - INTRACARDIAC THROMBUS [None]
  - NUCLEAR MAGNETIC RESONANCE IMAGING BRAIN ABNORMAL [None]
  - PARAESTHESIA [None]
  - PARESIS [None]
  - THROMBOSIS [None]
  - VENTRICULAR HYPOKINESIA [None]
